FAERS Safety Report 6463578-2 (Version None)
Quarter: 2009Q4

REPORT INFORMATION
  Report Type: 
  Country: None (occurrence: None)
  Receive Date: 20091201
  Receipt Date: 20091118
  Transmission Date: 20100525
  Serious: Yes (Hospitalization)
  Sender: FDA-Public Use
  Company Number: FR-EISAI INC.-E3810-03323-SPO-FR

PATIENT
  Sex: Female

DRUGS (5)
  1. PARIET (RABEPRAZOLE) [Suspect]
     Route: 048
     Dates: end: 20090415
  2. HYTACAND [Suspect]
     Indication: HYPERTENSION
     Route: 048
     Dates: end: 20090415
  3. LERCANIDIPINE [Suspect]
     Indication: HYPERTENSION
     Route: 048
     Dates: end: 20090415
  4. PROPRANOLOL [Suspect]
     Indication: HYPERTENSION
     Route: 048
     Dates: end: 20090415
  5. PARACETAMOL [Concomitant]
     Indication: MIGRAINE
     Route: 048
     Dates: end: 20090415

REACTIONS (2)
  - BLOOD PRESSURE SYSTOLIC INCREASED [None]
  - PANCREATITIS ACUTE [None]
